FAERS Safety Report 5836164-2 (Version None)
Quarter: 2008Q3

REPORT INFORMATION
  Report Type: 
  Country: None (occurrence: None)
  Receive Date: 20080805
  Receipt Date: 20080722
  Transmission Date: 20090109
  Serious: Yes (Hospitalization)
  Sender: FDA-Public Use
  Company Number: 235801J08USA

PATIENT
  Age: 66 Year
  Sex: Female
  Weight: 99.7913 kg

DRUGS (3)
  1. REBIF [Suspect]
     Indication: MULTIPLE SCLEROSIS
     Dosage: 44 MCG, 3 IN 1 WEEKS, SUBCUTANEOUS,
     Route: 058
     Dates: start: 20080519, end: 20080601
  2. REBIF [Suspect]
     Indication: MULTIPLE SCLEROSIS
     Dosage: 44 MCG, 3 IN 1 WEEKS, SUBCUTANEOUS,
     Route: 058
     Dates: start: 20080601
  3. BACLOFEN [Concomitant]

REACTIONS (3)
  - MUSCULAR WEAKNESS [None]
  - TIBIA FRACTURE [None]
  - URINARY TRACT INFECTION [None]
